FAERS Safety Report 25226578 (Version 1)
Quarter: 2025Q2

REPORT INFORMATION
  Report Type: Spontaneous
  Country: NZ (occurrence: NZ)
  Receive Date: 20250422
  Receipt Date: 20250422
  Transmission Date: 20250716
  Serious: Yes (Other)
  Sender: AMGEN
  Company Number: NZ-AMGEN-NZLSP2025074719

PATIENT

DRUGS (6)
  1. CARFILZOMIB [Suspect]
     Active Substance: CARFILZOMIB
     Indication: Plasma cell myeloma
     Route: 065
  2. CARFILZOMIB [Suspect]
     Active Substance: CARFILZOMIB
     Route: 065
  3. CYCLOPHOSPHAMIDE [Suspect]
     Active Substance: CYCLOPHOSPHAMIDE
     Indication: Plasma cell myeloma
     Route: 048
  4. DEXAMETHASONE [Suspect]
     Active Substance: DEXAMETHASONE
     Indication: Plasma cell myeloma
     Route: 065
  5. DEXAMETHASONE [Suspect]
     Active Substance: DEXAMETHASONE
     Route: 065
  6. THALIDOMIDE [Suspect]
     Active Substance: THALIDOMIDE
     Indication: Plasma cell myeloma
     Dosage: 100 MILLIGRAM, QD (CONTINUOUSLY)
     Route: 065

REACTIONS (12)
  - Haematotoxicity [Unknown]
  - Neutropenia [Unknown]
  - Thrombocytopenia [Unknown]
  - Pneumonia [Unknown]
  - Lower respiratory tract infection [Unknown]
  - Anaemia [Unknown]
  - Cardiac disorder [Unknown]
  - Drug intolerance [Unknown]
  - Dyspnoea [Unknown]
  - Nausea [Unknown]
  - Fatigue [Unknown]
  - Therapy partial responder [Unknown]
